FAERS Safety Report 14554210 (Version 1)
Quarter: 2018Q1

REPORT INFORMATION
  Report Type: Spontaneous
  Country: US (occurrence: US)
  Receive Date: 20180208
  Receipt Date: 20180208
  Transmission Date: 20180509
  Serious: Yes (Life-Threatening, Hospitalization)
  Sender: FDA-Public Use
  Company Number: None

PATIENT
  Age: 68 Year
  Sex: Male
  Weight: 85.9 kg

DRUGS (1)
  1. HALOPERIDOL. [Suspect]
     Active Substance: HALOPERIDOL
     Indication: HALLUCINATION
     Route: 042
     Dates: start: 20151122, end: 20151123

REACTIONS (6)
  - Tardive dyskinesia [None]
  - Muscle rigidity [None]
  - Confusional state [None]
  - Agitation [None]
  - Tachycardia [None]
  - Pyrexia [None]

NARRATIVE: CASE EVENT DATE: 20151122
